FAERS Safety Report 8188130-2 (Version None)
Quarter: 2012Q1

REPORT INFORMATION
  Report Type: 
  Country: None (occurrence: None)
  Receive Date: 20120306
  Receipt Date: 20120227
  Transmission Date: 20120608
  Serious: Yes (Other)
  Sender: FDA-Public Use
  Company Number: US-BAYER-2012-009284

PATIENT
  Age: 55 Year
  Sex: Female
  Weight: 72.562 kg

DRUGS (9)
  1. YAZ [Suspect]
     Indication: PREMENSTRUAL SYNDROME
     Dosage: UNK
     Dates: start: 20050401, end: 20110503
  2. DROSPIRENONE AND ETHINYL ESTRADIOL [Suspect]
     Indication: PREMENSTRUAL SYNDROME
     Dosage: UNK
     Dates: start: 20100701, end: 20110501
  3. HYDROCODONE BITARTRATE [Concomitant]
     Indication: PAIN
     Dosage: UNK
     Dates: start: 20100801
  4. DROSPIRENONE AND ETHINYL ESTRADIOL [Suspect]
     Indication: VAGINAL HAEMORRHAGE
  5. UNCODEABLE ^UNCLASSIFIABLE^ [Concomitant]
     Indication: TRANSIENT ISCHAEMIC ATTACK
     Dosage: UNK
     Dates: start: 20101101
  6. YAZ [Suspect]
     Indication: VAGINAL HAEMORRHAGE
  7. CIPRO [Concomitant]
     Indication: TRANSIENT ISCHAEMIC ATTACK
     Dosage: 500 MG, UNK
     Dates: start: 20101101
  8. IBUPROFEN (ADVIL) [Concomitant]
     Dosage: UNK
     Dates: start: 20060501, end: 20110101
  9. MOTRIN [Concomitant]
     Dosage: UNK
     Dates: start: 20060501, end: 20110101

REACTIONS (12)
  - PULMONARY EMBOLISM [None]
  - DEEP VEIN THROMBOSIS [None]
  - GENERAL PHYSICAL HEALTH DETERIORATION [None]
  - EYELID PTOSIS [None]
  - PAIN IN EXTREMITY [None]
  - EMOTIONAL DISTRESS [None]
  - VAGINAL HAEMORRHAGE [None]
  - DYSPNOEA [None]
  - HYPOAESTHESIA [None]
  - ANXIETY [None]
  - PAIN [None]
  - HEADACHE [None]
